FAERS Safety Report 18238644 (Version 3)
Quarter: 2021Q1

REPORT INFORMATION
  Report Type: Spontaneous
  Country: AU (occurrence: AU)
  Receive Date: 20200907
  Receipt Date: 20210128
  Transmission Date: 20210419
  Serious: Yes (Other)
  Sender: FDA-Public Use
  Company Number: NVSC2020AU240515

PATIENT

DRUGS (1)
  1. BEOVU [Suspect]
     Active Substance: BROLUCIZUMAB-DBLL
     Indication: PRODUCT USED FOR UNKNOWN INDICATION
     Dosage: UNK
     Route: 065
     Dates: start: 20200731

REACTIONS (8)
  - Anterior chamber cell [Unknown]
  - Ocular discomfort [Unknown]
  - Keratic precipitates [Unknown]
  - Cystoid macular oedema [Unknown]
  - Vitreous floaters [Unknown]
  - Vitreous haze [Unknown]
  - Eye haemorrhage [Unknown]
  - Anterior chamber inflammation [Unknown]

NARRATIVE: CASE EVENT DATE: 202008
